FAERS Safety Report 17394585 (Version 1)
Quarter: 2020Q1

REPORT INFORMATION
  Report Type: Spontaneous
  Country: US (occurrence: US)
  Receive Date: 20200124
  Receipt Date: 20200124
  Transmission Date: 20200409
  Serious: Yes (Death)
  Sender: FDA-Public Use
  Company Number: None

PATIENT
  Age: 59 Year
  Sex: Male

DRUGS (17)
  1. COCHINE [Concomitant]
  2. GABAPENTIN. [Concomitant]
     Active Substance: GABAPENTIN
  3. METOCLOPRAM [Concomitant]
     Active Substance: METOCLOPRAMIDE
  4. PROAIR HFA [Concomitant]
     Active Substance: ALBUTEROL SULFATE
  5. FLUTIXASONE [Concomitant]
  6. MIRTAZAPINE. [Concomitant]
     Active Substance: MIRTAZAPINE
  7. SILDENAFIL. [Concomitant]
     Active Substance: SILDENAFIL
  8. WARFARIN [Concomitant]
     Active Substance: WARFARIN
  9. BUMETANIDE. [Concomitant]
     Active Substance: BUMETANIDE
  10. FUROSEMIDE. [Concomitant]
     Active Substance: FUROSEMIDE
  11. PANTOPRAZOLE [Concomitant]
     Active Substance: PANTOPRAZOLE
  12. OPSUMIT [Suspect]
     Active Substance: MACITENTAN
     Indication: PULMONARY ARTERIAL HYPERTENSION
     Route: 048
     Dates: start: 20170329, end: 20200115
  13. ALLOPURINOL. [Concomitant]
     Active Substance: ALLOPURINOL
  14. METOLAZONE. [Concomitant]
     Active Substance: METOLAZONE
  15. DIGOXIN. [Concomitant]
     Active Substance: DIGOXIN
  16. PREGABALIN. [Concomitant]
     Active Substance: PREGABALIN
  17. SUMATRIPTAN. [Concomitant]
     Active Substance: SUMATRIPTAN

REACTIONS (1)
  - Death [None]

NARRATIVE: CASE EVENT DATE: 20200115
